FAERS Safety Report 21683205 (Version 2)
Quarter: 2023Q1

REPORT INFORMATION
  Report Type: Report from Study
  Country: HU (occurrence: HU)
  Receive Date: 20221205
  Receipt Date: 20230102
  Transmission Date: 20230418
  Serious: Yes (Hospitalization, Other)
  Sender: FDA-Public Use
  Company Number: HU-002147023-NVSC2020HU370351

PATIENT
  Age: 17 Month
  Sex: Female
  Weight: 9 kg

DRUGS (9)
  1. ZOLGENSMA [Suspect]
     Active Substance: ONASEMNOGENE ABEPARVOVEC-XIOI
     Indication: Spinal muscular atrophy
     Dosage: 5.5 ML, ONCE/SINGLE (2X5.5ML)
     Route: 042
     Dates: start: 20200623
  2. ZOLGENSMA [Suspect]
     Active Substance: ONASEMNOGENE ABEPARVOVEC-XIOI
     Dosage: 8.3 ML, ONCE/SINGLE (5X8.3ML)
     Route: 042
     Dates: start: 20200623
  3. PREDNISOLONE [Concomitant]
     Active Substance: PREDNISOLONE
     Indication: Product used for unknown indication
     Dosage: 1 MG/KG, QD
     Route: 065
     Dates: start: 20200622, end: 2020
  4. PREDNISOLONE [Concomitant]
     Active Substance: PREDNISOLONE
     Dosage: 0.7 MG/KG, QD
     Route: 065
     Dates: start: 202008, end: 20200919
  5. PREDNISOLONE [Concomitant]
     Active Substance: PREDNISOLONE
     Dosage: 0.5 MG/KG, QD
     Route: 065
     Dates: start: 20200819, end: 20200903
  6. PREDNISOLONE [Concomitant]
     Active Substance: PREDNISOLONE
     Dosage: 0.25 MG/KG, QD
     Route: 065
     Dates: start: 202009, end: 20200917
  7. PREDNISOLONE [Concomitant]
     Active Substance: PREDNISOLONE
     Dosage: 0.125 MG/KG, QD
     Route: 065
     Dates: start: 20200917
  8. FAMOTIDINE [Concomitant]
     Active Substance: FAMOTIDINE
     Indication: Product used for unknown indication
     Dosage: 1 MG/KG, QD
     Route: 065
     Dates: start: 20200622
  9. VIGANTOL [Concomitant]
     Indication: Product used for unknown indication
     Dosage: 1000 IU, QD (DROPS)
     Route: 065

REACTIONS (35)
  - Feeding disorder [Unknown]
  - Vomiting [Recovered/Resolved]
  - Weight decreased [Recovering/Resolving]
  - Dehydration [Recovered/Resolved]
  - Pyrexia [Recovered/Resolved]
  - Granulocytopenia [Recovering/Resolving]
  - Leukopenia [Unknown]
  - Thrombocytopenia [Recovered/Resolved]
  - Hyperlactacidaemia [Recovered/Resolved]
  - Hypokalaemia [Recovered/Resolved]
  - Hypokalaemia [Recovering/Resolving]
  - Lactic acidosis [Unknown]
  - Electrocardiogram T wave inversion [Unknown]
  - Blood creatine phosphokinase increased [Unknown]
  - Nausea [Unknown]
  - Metabolic alkalosis [Recovering/Resolving]
  - Aspartate aminotransferase increased [Recovering/Resolving]
  - Alanine aminotransferase increased [Recovering/Resolving]
  - Respiratory disorder [Recovering/Resolving]
  - Hypovolaemia [Unknown]
  - Food intolerance [Unknown]
  - Nutritional condition abnormal [Unknown]
  - Upper respiratory tract infection [Unknown]
  - Increased bronchial secretion [Not Recovered/Not Resolved]
  - Salivary hypersecretion [Not Recovered/Not Resolved]
  - Pyrexia [Recovered/Resolved]
  - White blood cell count decreased [Unknown]
  - Hepatic enzyme increased [Unknown]
  - Vomiting [Recovered/Resolved]
  - Transaminases increased [Unknown]
  - Tachycardia [Unknown]
  - Blood pressure decreased [Unknown]
  - Chest X-ray abnormal [Unknown]
  - Dyspnoea [Unknown]
  - Gastrointestinal hypermotility [Unknown]

NARRATIVE: CASE EVENT DATE: 20200101
